FAERS Safety Report 9649315 (Version 2)
Quarter: 2013Q4

REPORT INFORMATION
  Report Type: Spontaneous
  Country: SE (occurrence: SE)
  Receive Date: 20131028
  Receipt Date: 20131129
  Transmission Date: 20140711
  Serious: Yes (Other)
  Sender: FDA-Public Use
  Company Number: PHHY2013SE120382

PATIENT
  Sex: Male

DRUGS (1)
  1. LEPONEX [Suspect]
     Dosage: 200+300 DAILY

REACTIONS (4)
  - Hallucination, auditory [Not Recovered/Not Resolved]
  - Salivary hypersecretion [Recovering/Resolving]
  - Antipsychotic drug level above therapeutic [Unknown]
  - Drug ineffective [Unknown]
